FAERS Safety Report 4720486-2 (Version None)
Quarter: 2005Q3

REPORT INFORMATION
  Report Type: 
  Country: None (occurrence: None)
  Receive Date: 20050721
  Receipt Date: 20041011
  Transmission Date: 20060218
  Serious: No
  Sender: FDA-Public Use
  Company Number: US-BRISTOL-MYERS SQUIBB COMPANY-12728184

PATIENT
  Age: 69 Year
  Sex: Female
  Weight: 63 kg

DRUGS (9)
  1. GLUCOVANCE [Suspect]
     Indication: DIABETES MELLITUS
     Route: 048
     Dates: start: 20030101
  2. COUMADIN [Concomitant]
  3. LANOXIN [Concomitant]
  4. SYNTHROID [Concomitant]
  5. LASIX [Concomitant]
  6. DIPYRIDAMOLE [Concomitant]
  7. KLOR-CON [Concomitant]
  8. COZAAR [Concomitant]
  9. ALDACTONE [Concomitant]

REACTIONS (2)
  - ABDOMINAL DISTENSION [None]
  - DIARRHOEA [None]
